FAERS Safety Report 23283386 (Version 1)
Quarter: 2023Q4

REPORT INFORMATION
  Report Type: Report from Study
  Country: US (occurrence: US)
  Receive Date: 20231211
  Receipt Date: 20231211
  Transmission Date: 20240110
  Serious: Yes (Other)
  Sender: FDA-Public Use
  Company Number: US-ABBVIE-5526323

PATIENT
  Sex: Female

DRUGS (1)
  1. HUMIRA [Suspect]
     Active Substance: ADALIMUMAB
     Indication: Colitis ulcerative
     Dosage: STRENGTH 40 MG, CITRATE FREE
     Route: 058
     Dates: start: 20231010

REACTIONS (5)
  - Blindness unilateral [Recovered/Resolved]
  - Hypoaesthesia [Unknown]
  - Ophthalmic migraine [Unknown]
  - Cerebrovascular accident [Unknown]
  - Anxiety [Unknown]

NARRATIVE: CASE EVENT DATE: 20230101
